FAERS Safety Report 7148798-6 (Version None)
Quarter: 2010Q4

REPORT INFORMATION
  Report Type: 
  Country: None (occurrence: None)
  Receive Date: 20101209
  Receipt Date: 20101126
  Transmission Date: 20110411
  Serious: Yes (Other)
  Sender: FDA-Public Use
  Company Number: PHHY2010CA53578

PATIENT
  Sex: Female

DRUGS (2)
  1. CLOZARIL [Suspect]
     Indication: SCHIZOPHRENIA
     Dosage: UNK
     Dates: start: 19981109
  2. MANNITOL [Concomitant]
     Dosage: 30 MG, BID
     Dates: start: 20100223

REACTIONS (3)
  - NEUTROPENIA [None]
  - SQUAMOUS CELL CARCINOMA [None]
  - TONGUE CANCER METASTATIC [None]
